FAERS Safety Report 11336842 (Version 2)
Quarter: 2018Q1

REPORT INFORMATION
  Report Type: Spontaneous
  Country: US (occurrence: US)
  Receive Date: 20150804
  Receipt Date: 20180109
  Transmission Date: 20180508
  Serious: Yes (Other)
  Sender: FDA-Public Use
  Company Number: US-MYLANLABS-2015M1025511

PATIENT
  Age: 40 Year
  Sex: Female

DRUGS (4)
  1. ESTROGEN [Concomitant]
     Active Substance: ESTROGENS
     Indication: ANDROGEN REPLACEMENT THERAPY
     Dosage: WEEKLY INJECTION
     Route: 030
  2. SPIRONOLACTONE. [Suspect]
     Active Substance: SPIRONOLACTONE
     Indication: TRANSGENDER HORMONAL THERAPY
     Dosage: 100MG DAILY
     Route: 065
  3. PROGESTERONE. [Concomitant]
     Active Substance: PROGESTERONE
     Indication: ANDROGEN REPLACEMENT THERAPY
     Dosage: UNK
     Route: 065
  4. ESTROGEN [Concomitant]
     Active Substance: ESTROGENS
     Indication: ANDROGEN REPLACEMENT THERAPY
     Dosage: UNK
     Route: 048

REACTIONS (1)
  - Spinal muscular atrophy [Unknown]
